FAERS Safety Report 7139189-2 (Version None)
Quarter: 2010Q4

REPORT INFORMATION
  Report Type: 
  Country: None (occurrence: None)
  Receive Date: 20101202
  Receipt Date: 20101202
  Transmission Date: 20110411
  Serious: Yes (Other)
  Sender: FDA-Public Use
  Company Number: None

PATIENT
  Age: 45 Year
  Sex: Male
  Weight: 70.3075 kg

DRUGS (1)
  1. POTASSIUM CITRATE [Suspect]
     Indication: NEPHROLITHIASIS
     Dosage: 10MEQ 2XDAY PO
     Route: 048
     Dates: start: 20070101, end: 20101201

REACTIONS (2)
  - PRODUCT QUALITY ISSUE [None]
  - PRODUCT SUBSTITUTION ISSUE [None]
